FAERS Safety Report 24241693 (Version 1)
Quarter: 2024Q3

REPORT INFORMATION
  Report Type: Spontaneous
  Country: US (occurrence: US)
  Receive Date: 20240823
  Receipt Date: 20240823
  Transmission Date: 20241017
  Serious: Yes (Other)
  Sender: MERCK
  Company Number: US-009507513-2408USA006878

PATIENT
  Sex: Male

DRUGS (1)
  1. KEYTRUDA [Suspect]
     Active Substance: PEMBROLIZUMAB
     Indication: Hodgkin^s disease recurrent
     Dosage: 200 MILLIGRAM, Q3W
     Dates: start: 201602, end: 201802

REACTIONS (1)
  - Hodgkin^s disease recurrent [Unknown]

NARRATIVE: CASE EVENT DATE: 20190101
